FAERS Safety Report 14915311 (Version 5)
Quarter: 2018Q3

REPORT INFORMATION
  Report Type: Spontaneous
  Country: DE (occurrence: DE)
  Receive Date: 20180518
  Receipt Date: 20180802
  Transmission Date: 20181010
  Serious: Yes (Hospitalization, Other)
  Sender: FDA-Public Use
  Company Number: PHHY2018DE053800

PATIENT
  Age: 48 Year
  Sex: Female
  Weight: 42 kg

DRUGS (36)
  1. NATRIUM CHLORIDUM [Concomitant]
     Active Substance: SODIUM CHLORIDE
     Indication: PROPHYLAXIS
     Dosage: 100 ML, UNK
     Route: 041
  2. CARBOPLATIN. [Suspect]
     Active Substance: CARBOPLATIN
     Dosage: 1 DF, UNK
     Route: 041
  3. ABRAXANE [Suspect]
     Active Substance: PACLITAXEL
     Dosage: 100 MG/M2, QD
     Route: 041
     Dates: start: 20171215
  4. DEXAMETHASONE. [Concomitant]
     Active Substance: DEXAMETHASONE
     Indication: PROPHYLAXIS
     Dosage: 8 MG, UNK
     Route: 041
     Dates: start: 20171208, end: 20180105
  5. NYSTADERM [Concomitant]
     Indication: PROPHYLAXIS
     Dosage: 4 DF, QD (1 APPLICATION)
     Route: 048
     Dates: start: 201711, end: 20171214
  6. VENTOLAIR [Concomitant]
     Active Substance: BECLOMETHASONE DIPROPIONATE
     Indication: PROPHYLAXIS
     Dosage: 2 DF, QD (1 PUFF)
     Route: 055
     Dates: start: 201711
  7. PANTHENOL [Concomitant]
     Active Substance: PANTHENOL
     Dosage: 1 DF, UNK
     Route: 048
     Dates: start: 201711, end: 20171210
  8. L?THYROXINE [Concomitant]
     Active Substance: LEVOTHYROXINE
     Indication: THYROIDECTOMY
     Dosage: 100 UG, QD
     Route: 048
     Dates: start: 20171104, end: 20171207
  9. PANTOZOL [Concomitant]
     Active Substance: PANTOPRAZOLE SODIUM
     Indication: PROPHYLAXIS
     Dosage: 40 MG, QD
     Route: 048
  10. CARBOPLATIN. [Suspect]
     Active Substance: CARBOPLATIN
     Dosage: 4.8 MG X MIN/ML
     Route: 041
  11. ABRAXANE [Suspect]
     Active Substance: PACLITAXEL
     Dosage: 100 MG/M2, QD
     Route: 041
     Dates: start: 20180105
  12. DEXAMETHASONE. [Concomitant]
     Active Substance: DEXAMETHASONE
     Dosage: 24 MG, AT INTERVAL OF 1 DAY
     Route: 048
  13. ONDANSETRON [Concomitant]
     Active Substance: ONDANSETRON
     Indication: PROPHYLAXIS
     Dosage: 8 MG, UNK
     Route: 041
  14. HUMANALBUMIN [Concomitant]
     Active Substance: ALBUMIN HUMAN
     Indication: CACHEXIA
     Dosage: 1 OT, QD
     Route: 041
     Dates: start: 20180215, end: 20180219
  15. PANTHENOL [Concomitant]
     Active Substance: PANTHENOL
     Indication: PROPHYLAXIS
     Dosage: 5 DF, QD (ONE TAB)
     Route: 048
     Dates: start: 201711, end: 20171210
  16. L?THYROXINE [Concomitant]
     Active Substance: LEVOTHYROXINE
     Dosage: 150 UG, QD
     Route: 048
     Dates: start: 20180213, end: 20180228
  17. AMPHO MORONAL [Concomitant]
     Active Substance: AMPHOTERICIN B
     Indication: STOMATITIS
     Dosage: 4 ML, QD
     Route: 061
     Dates: start: 20180212
  18. CARBOPLATIN. [Suspect]
     Active Substance: CARBOPLATIN
     Indication: NON-SMALL CELL LUNG CANCER
     Dosage: 4.8 MG X MIN/ML (1 DF)
     Route: 041
  19. MSI [Concomitant]
     Active Substance: MORPHINE SULFATE
     Indication: TUMOUR PAIN
     Dosage: 5 MG, UNK
     Route: 058
  20. NOVAMINSULFON [Concomitant]
     Active Substance: METAMIZOLE
     Indication: TUMOUR PAIN
     Dosage: 120 GTT, QD (120 DROPS) (1 DF = 120)
     Route: 048
     Dates: start: 2017
  21. VENTOLAIR [Concomitant]
     Active Substance: BECLOMETHASONE DIPROPIONATE
     Dosage: 1 DF, AT INTERVAL OF 1 DAY
     Route: 055
  22. TAVOR [Concomitant]
     Indication: INSOMNIA
     Dosage: 1 MG, UNK
     Route: 048
  23. ABRAXANE [Suspect]
     Active Substance: PACLITAXEL
     Indication: NON-SMALL CELL LUNG CANCER
     Dosage: 100 MG/M2, QD
     Route: 041
     Dates: start: 20171208
  24. SALBUTAMOL [Concomitant]
     Active Substance: ALBUTEROL
     Indication: CHRONIC OBSTRUCTIVE PULMONARY DISEASE
     Dosage: 1 DF, (1 PUFF)
     Route: 055
  25. BRIMICA GENUAIR [Concomitant]
     Active Substance: ACLIDINIUM BROMIDE\FORMOTEROL FUMARATE
     Indication: CHRONIC OBSTRUCTIVE PULMONARY DISEASE
     Dosage: 2 DF, QD (1 PUFF)
     Route: 055
     Dates: start: 20171108
  26. DEXAMETHASONE. [Concomitant]
     Active Substance: DEXAMETHASONE
     Dosage: 24 MG, QD
     Route: 048
     Dates: start: 20180202
  27. ATROVENT [Concomitant]
     Active Substance: IPRATROPIUM BROMIDE
     Indication: CHRONIC OBSTRUCTIVE PULMONARY DISEASE
     Dosage: 1 DF (500MICROG/2ML)
     Route: 065
     Dates: start: 20180212, end: 20180228
  28. VENTOLAIR [Concomitant]
     Active Substance: BECLOMETHASONE DIPROPIONATE
     Dosage: 1 PUFF
     Route: 055
     Dates: start: 201711, end: 20180210
  29. L?THYROXINE [Concomitant]
     Active Substance: LEVOTHYROXINE
     Dosage: 125 UG, QD
     Route: 048
     Dates: start: 20171208
  30. FRESUBIN [Concomitant]
     Active Substance: AMINO ACIDS\DEXTROSE\ELECTROLYTES NOS\SOYBEAN OIL\VITAMINS
     Indication: CACHEXIA
     Dosage: 2 DF, QD (1 APPLICATION)
     Route: 048
     Dates: start: 20171211
  31. VITADRAL [Concomitant]
     Indication: PROPHYLAXIS
     Dosage: 25 GTT, QD (25 DROPS)
     Route: 048
     Dates: start: 201711, end: 20171210
  32. ABRAXANE [Suspect]
     Active Substance: PACLITAXEL
     Dosage: 100 MG/M2, QD
     Route: 041
     Dates: start: 20180112
  33. AMOCLAV [Concomitant]
     Active Substance: AMOXICILLIN\CLAVULANATE POTASSIUM
     Indication: PRODUCT USED FOR UNKNOWN INDICATION
     Dosage: 1 DF, Q48H
     Route: 065
     Dates: start: 20180228, end: 20180304
  34. AMPHO MORONAL [Concomitant]
     Active Substance: AMPHOTERICIN B
     Dosage: 4 ML, AT INTERVAL OF 1 DAY
     Route: 061
  35. ABRAXANE [Suspect]
     Active Substance: PACLITAXEL
     Dosage: 100 MG/M2, AT AN INTERVAL OF 1 DAY
     Route: 041
     Dates: start: 20171208, end: 20180119
  36. L?THYROXINE [Concomitant]
     Active Substance: LEVOTHYROXINE
     Dosage: 125 UG, QD
     Route: 048
     Dates: start: 20180301

REACTIONS (5)
  - Leukopenia [Recovered/Resolved]
  - Pneumothorax [Recovered/Resolved]
  - Nausea [Not Recovered/Not Resolved]
  - Anaemia [Recovered/Resolved]
  - Leukopenia [Recovered/Resolved]

NARRATIVE: CASE EVENT DATE: 20171209
